FAERS Safety Report 11161992 (Version 1)
Quarter: 2015Q2

REPORT INFORMATION
  Report Type: Spontaneous
  Country: US (occurrence: US)
  Receive Date: 20150604
  Receipt Date: 20150604
  Transmission Date: 20150821
  Serious: No
  Sender: FDA-Public Use
  Company Number: US-SA-2014SA114171

PATIENT
  Age: 66 Year
  Sex: Female

DRUGS (4)
  1. LISINOPRIL. [Concomitant]
     Active Substance: LISINOPRIL
  2. LANTUS SOLOSTAR [Suspect]
     Active Substance: INSULIN GLARGINE
     Indication: TYPE 2 DIABETES MELLITUS
     Dosage: DOSE:20 UNIT(S)
     Route: 058
     Dates: start: 201408, end: 20140814
  3. SOLOSTAR [Concomitant]
     Active Substance: DEVICE
     Dates: start: 201408, end: 20140814
  4. LEVEMIR [Concomitant]
     Active Substance: INSULIN DETEMIR

REACTIONS (8)
  - Urinary tract infection [Unknown]
  - Romberg test positive [Recovered/Resolved]
  - Photopsia [Recovered/Resolved]
  - Blood glucose increased [Recovering/Resolving]
  - Tardive dyskinesia [Unknown]
  - Dysarthria [Recovered/Resolved]
  - Dyskinesia [Recovered/Resolved]
  - Swollen tongue [Recovered/Resolved]

NARRATIVE: CASE EVENT DATE: 2014
